FAERS Safety Report 9468849 (Version 1)
Quarter: 2013Q3

REPORT INFORMATION
  Report Type: Spontaneous
  Country: RO (occurrence: RO)
  Receive Date: 20130821
  Receipt Date: 20130821
  Transmission Date: 20140515
  Serious: Yes (Hospitalization)
  Sender: FDA-Public Use
  Company Number: PHHY2013RO089690

PATIENT
  Age: 57 Year
  Sex: Female

DRUGS (2)
  1. FUROSEMIDE [Suspect]
  2. SPIRONOLACTONE [Suspect]

REACTIONS (2)
  - Alkalosis [Unknown]
  - Hypokalaemia [Unknown]
